FAERS Safety Report 15834499 (Version 1)
Quarter: 2019Q1

REPORT INFORMATION
  Report Type: Report from Study
  Country: ES (occurrence: ES)
  Receive Date: 20190116
  Receipt Date: 20190116
  Transmission Date: 20190417
  Serious: Yes (Other)
  Sender: FDA-Public Use
  Company Number: ES-GILEAD-2019-0384156

PATIENT
  Age: 48 Year
  Sex: Male

DRUGS (2)
  1. EMTRICITABINE;RILPIVIRINE;TENOFOVIR DISOPROXIL FUMARATE [Concomitant]
  2. LEDIPASVIR/SOFOSBUVIR [Suspect]
     Active Substance: LEDIPASVIR\SOFOSBUVIR
     Indication: CHRONIC HEPATITIS C
     Dosage: UNK, QD
     Route: 048

REACTIONS (3)
  - Drug ineffective [Recovered/Resolved]
  - Hepatitis C [Recovered/Resolved]
  - Genotype drug resistance test positive [Unknown]
